FAERS Safety Report 5746474-5 (Version None)
Quarter: 2008Q2

REPORT INFORMATION
  Report Type: 
  Country: None (occurrence: None)
  Receive Date: 20080522
  Receipt Date: 20080519
  Transmission Date: 20081010
  Serious: Yes (Hospitalization)
  Sender: FDA-Public Use
  Company Number: B0521434A

PATIENT
  Age: 63 Year
  Sex: Male

DRUGS (5)
  1. FLIXONASE [Suspect]
     Indication: RHINORRHOEA
     Route: 065
     Dates: start: 20060913, end: 20060920
  2. MAGNYL [Concomitant]
     Indication: CARDIAC DISORDER
     Dosage: 100MG PER DAY
     Route: 048
     Dates: start: 20030615
  3. ATACAND [Concomitant]
     Indication: CARDIAC DISORDER
     Dosage: 32MG PER DAY
     Route: 048
     Dates: start: 20030615
  4. SIMVASTATIN [Concomitant]
     Indication: CARDIAC DISORDER
     Dosage: 40MG PER DAY
     Route: 065
     Dates: start: 20030615
  5. DIMITONE [Concomitant]
     Indication: CARDIAC DISORDER
     Dosage: 25MG PER DAY
     Route: 048
     Dates: start: 20030615

REACTIONS (1)
  - EPISTAXIS [None]
